FAERS Safety Report 12650497 (Version 1)
Quarter: 2016Q3

REPORT INFORMATION
  Report Type: Report from Study
  Country: GB (occurrence: GB)
  Receive Date: 20160815
  Receipt Date: 20160815
  Transmission Date: 20161109
  Serious: Yes (Hospitalization)
  Sender: FDA-Public Use
  Company Number: GB-ROCHE-1801652

PATIENT
  Age: 54 Year
  Sex: Female
  Weight: 65.2 kg

DRUGS (16)
  1. BACTROBAN [Concomitant]
     Active Substance: MUPIROCIN\MUPIROCIN CALCIUM
     Indication: STAPHYLOCOCCAL INFECTION
     Route: 061
     Dates: start: 20160713, end: 20160718
  2. PACKED RED CELLS [Concomitant]
     Indication: ANAEMIA
     Route: 042
     Dates: start: 20160804, end: 20160804
  3. OCTENISAN (ALLANTOIN/OCTENIDINE HYDROCHLORIDE) [Concomitant]
     Route: 061
     Dates: start: 20160802, end: 20160804
  4. FERROUS SULFATE. [Concomitant]
     Active Substance: FERROUS SULFATE
     Indication: ANAEMIA
     Route: 048
     Dates: start: 20160720
  5. OMEPRAZOLE. [Concomitant]
     Active Substance: OMEPRAZOLE
     Indication: DYSPEPSIA
  6. OMEPRAZOLE. [Concomitant]
     Active Substance: OMEPRAZOLE
     Indication: DYSPEPSIA
     Route: 048
     Dates: start: 2011
  7. DOXYCYCLINE. [Concomitant]
     Active Substance: DOXYCYCLINE
     Route: 048
     Dates: start: 20160803
  8. OCTENISAN (ALLANTOIN/OCTENIDINE HYDROCHLORIDE) [Concomitant]
     Indication: STAPHYLOCOCCAL INFECTION
     Route: 061
     Dates: start: 20160713, end: 20160718
  9. DOXYCYCLINE. [Concomitant]
     Active Substance: DOXYCYCLINE
     Indication: INFECTION
     Route: 048
     Dates: start: 20160712, end: 20160716
  10. THYROXINE [Concomitant]
     Active Substance: LEVOTHYROXINE
     Indication: HYPOTHYROIDISM
     Route: 048
     Dates: start: 1991
  11. BACTROBAN [Concomitant]
     Active Substance: MUPIROCIN\MUPIROCIN CALCIUM
     Route: 061
     Dates: start: 20160802, end: 20160802
  12. COBIMETINIB [Suspect]
     Active Substance: COBIMETINIB
     Indication: BREAST CANCER METASTATIC
     Dosage: DATE OF MOST RECENT DOSE PRIOR TO PYREXIA ONSET: 24/JUL/2016, 60 MG?DATE OF MOST RECENT DOSE PRIOR T
     Route: 048
     Dates: start: 20160623
  13. PACLITAXEL. [Suspect]
     Active Substance: PACLITAXEL
     Indication: BREAST CANCER METASTATIC
     Dosage: DATE OF MOST RECENT DOSE PRIOR TO PYREXIA ONSET: 20/JUL/2016 OF 138 MG?DATE OF MOST RECENT DOSE PRIO
     Route: 042
     Dates: start: 20160621
  14. ARANESP [Concomitant]
     Active Substance: DARBEPOETIN ALFA
     Indication: ANAEMIA
     Route: 058
     Dates: start: 20160803
  15. ERYTHROMYCIN. [Concomitant]
     Active Substance: ERYTHROMYCIN
     Indication: PROPHYLAXIS
     Route: 048
     Dates: start: 198105
  16. MEROPENEM. [Concomitant]
     Active Substance: MEROPENEM
     Indication: INFECTION
     Route: 042
     Dates: start: 20160802, end: 20160803

REACTIONS (2)
  - Dyspnoea [Recovering/Resolving]
  - Pyrexia [Not Recovered/Not Resolved]

NARRATIVE: CASE EVENT DATE: 20160724
